FAERS Safety Report 6833802-2 (Version None)
Quarter: 2010Q3

REPORT INFORMATION
  Report Type: 
  Country: None (occurrence: None)
  Receive Date: 20100712
  Receipt Date: 20070402
  Transmission Date: 20110219
  Serious: No
  Sender: FDA-Public Use
  Company Number: US-PFIZER INC-2007027520

PATIENT
  Sex: Male
  Weight: 117.93 kg

DRUGS (6)
  1. CHANTIX [Suspect]
     Indication: SMOKING CESSATION THERAPY
     Dates: start: 20070320
  2. LIPITOR [Concomitant]
  3. GLIPIZIDE [Concomitant]
  4. METFORMIN HYDROCHLORIDE [Concomitant]
  5. BYETTA [Concomitant]
  6. ACETYLSALICYLIC ACID [Concomitant]

REACTIONS (2)
  - COUGH [None]
  - INSOMNIA [None]
